FAERS Safety Report 5886991-0 (Version None)
Quarter: 2008Q3

REPORT INFORMATION
  Report Type: 
  Country: None (occurrence: None)
  Receive Date: 20080917
  Receipt Date: 20080911
  Transmission Date: 20090109
  Serious: Yes (Other)
  Sender: FDA-Public Use
  Company Number: FR-ROXANE LABORATORIES, INC.-2008-RO-00019RO

PATIENT
  Age: 49 Year
  Sex: Male

DRUGS (7)
  1. GRANISETRON [Suspect]
     Indication: PROPHYLAXIS OF NAUSEA AND VOMITING
  2. ONDANSETRON [Suspect]
  3. FLUOROURACIL [Suspect]
     Indication: PANCREATIC CARCINOMA
  4. IRINOTECAN HCL [Suspect]
     Indication: PANCREATIC CARCINOMA
  5. OXALIPLATIN [Suspect]
     Indication: PANCREATIC CARCINOMA
  6. METHYLPREDNISOLONE 16MG TAB [Suspect]
     Indication: PROPHYLAXIS OF NAUSEA AND VOMITING
  7. ALIZAPRIDE [Concomitant]
     Indication: PROPHYLAXIS OF NAUSEA AND VOMITING

REACTIONS (3)
  - ADVERSE DRUG REACTION [None]
  - DOCUMENTED HYPERSENSITIVITY TO ADMINISTERED DRUG [None]
  - URTICARIA [None]
